FAERS Safety Report 6382870-3 (Version None)
Quarter: 2009Q3

REPORT INFORMATION
  Report Type: 
  Country: None (occurrence: None)
  Receive Date: 20090930
  Receipt Date: 20090918
  Transmission Date: 20100115
  Serious: Yes (Hospitalization)
  Sender: FDA-Public Use
  Company Number: JP-PFIZER INC-2009274855

PATIENT
  Age: 53 Year

DRUGS (11)
  1. CELECOX [Suspect]
     Dosage: UNKNOWN/D
     Route: 048
  2. PREDNISOLONE AND PREDNISOLONE STEAGLATE [Suspect]
     Dosage: 1 MG, UNKNOWN/D
     Route: 048
  3. PREDONINE [Concomitant]
     Route: 048
  4. ACTONEL [Concomitant]
     Route: 048
  5. ONEALFA [Concomitant]
     Route: 048
  6. NAPAGELN [Concomitant]
  7. SODIUM ALGINATE [Concomitant]
  8. TAKEPRON [Concomitant]
     Route: 048
  9. SELBEX [Concomitant]
     Route: 048
  10. URSO 250 [Concomitant]
     Route: 048
  11. HALCION [Concomitant]
     Route: 048

REACTIONS (2)
  - DUODENAL ULCER [None]
  - HYPERHIDROSIS [None]
